FAERS Safety Report 21788164 (Version 1)
Quarter: 2022Q4

REPORT INFORMATION
  Report Type: Other
  Country: None (occurrence: US)
  Receive Date: 20221228
  Receipt Date: 20221228
  Transmission Date: 20230112
  Serious: Yes (Other)
  Sender: FDA-Public Use
  Company Number: US-MLV Pharma LLC-2136225

PATIENT
  Age: 54 Year
  Sex: Female

DRUGS (14)
  1. ROPINIROLE HYDROCHLORIDE [Suspect]
     Active Substance: ROPINIROLE HYDROCHLORIDE
     Indication: Product used for unknown indication
     Route: 048
  2. BUPROPION [Suspect]
     Active Substance: BUPROPION
     Route: 048
  3. ALBUTEROL [Suspect]
     Active Substance: ALBUTEROL
     Route: 045
  4. OXYCODONE AND ACETAMINOPHEN [Suspect]
     Active Substance: ACETAMINOPHEN\OXYCODONE HYDROCHLORIDE
     Route: 048
  5. RANITIDINE [Suspect]
     Active Substance: RANITIDINE
     Route: 048
  6. HYDROCODONE BITARTRATE AND ACETAMINOPHEN [Suspect]
     Active Substance: ACETAMINOPHEN\HYDROCODONE BITARTRATE
     Route: 065
  7. BUSPIRONE [Suspect]
     Active Substance: BUSPIRONE HYDROCHLORIDE
     Route: 048
  8. ONDANSETRON [Suspect]
     Active Substance: ONDANSETRON
     Route: 048
  9. MORPHINE SULFATE [Suspect]
     Active Substance: MORPHINE SULFATE
     Route: 048
  10. ELETRIPTAN [Suspect]
     Active Substance: ELETRIPTAN
     Route: 048
  11. SUVOREXANT [Suspect]
     Active Substance: SUVOREXANT
     Route: 048
  12. CARBIDOPA AND LEVODOPA [Suspect]
     Active Substance: CARBIDOPA\LEVODOPA
     Route: 048
  13. DOMPERIDONE [Suspect]
     Active Substance: DOMPERIDONE
     Route: 048
  14. PREGABALIN [Suspect]
     Active Substance: PREGABALIN
     Route: 048

REACTIONS (3)
  - Serotonin syndrome [Unknown]
  - Parkinsonism [Unknown]
  - Drug interaction [Unknown]
